FAERS Safety Report 6068196-6 (Version None)
Quarter: 2009Q1

REPORT INFORMATION
  Report Type: 
  Country: None (occurrence: None)
  Receive Date: 20090206
  Receipt Date: 20090129
  Transmission Date: 20090719
  Serious: Yes (Hospitalization)
  Sender: FDA-Public Use
  Company Number: CH-NOVOPROD-283679

PATIENT
  Age: 78 Year
  Sex: Female

DRUGS (6)
  1. ESTROFEM [Suspect]
     Indication: DRUG USE FOR UNKNOWN INDICATION
  2. ENATEC [Concomitant]
  3. CALCIMAGON-D 3 [Concomitant]
  4. PREDNISONE [Concomitant]
     Route: 048
  5. FOSAMAX [Concomitant]
  6. ANTRA                              /00661201/ [Concomitant]

REACTIONS (1)
  - DEEP VEIN THROMBOSIS [None]
